FAERS Safety Report 7955407-2 (Version None)
Quarter: 2011Q4

REPORT INFORMATION
  Report Type: 
  Country: None (occurrence: None)
  Receive Date: 20111202
  Receipt Date: 20111121
  Transmission Date: 20120403
  Serious: Yes (Other)
  Sender: FDA-Public Use
  Company Number: JP-CELGENEUS-087-21660-11113771

PATIENT
  Sex: Female
  Weight: 48 kg

DRUGS (6)
  1. JANUVIA [Concomitant]
     Indication: DIABETES MELLITUS
     Dosage: 4 MILLIGRAM
     Route: 048
  2. XELODA [Concomitant]
     Route: 065
     Dates: start: 20111022
  3. ABRAXANE [Suspect]
     Dosage: 100 MILLIGRAM/SQ. METER
     Route: 050
     Dates: start: 20110902, end: 20110909
  4. AMARYL [Concomitant]
     Indication: DIABETES MELLITUS
     Dosage: 4 MILLIGRAM
     Route: 048
     Dates: start: 20110312
  5. ABRAXANE [Suspect]
     Indication: BREAST CANCER METASTATIC
     Dosage: 227 MILLIGRAM
     Route: 050
     Dates: start: 20110121, end: 20110805
  6. ZOMETA [Concomitant]
     Indication: BREAST CANCER METASTATIC
     Dosage: 4 MILLIGRAM
     Route: 065
     Dates: start: 20101220

REACTIONS (1)
  - MACULAR OEDEMA [None]
